FAERS Safety Report 10675363 (Version 4)
Quarter: 2019Q1

REPORT INFORMATION
  Report Type: Spontaneous
  Country: US (occurrence: US)
  Receive Date: 20141224
  Receipt Date: 20190304
  Transmission Date: 20190417
  Serious: Yes (Other)
  Sender: FDA-Public Use
  Company Number: US-PFIZER INC-2014356382

PATIENT
  Age: 85 Year
  Sex: Female

DRUGS (1)
  1. LYRICA [Suspect]
     Active Substance: PREGABALIN
     Indication: PAIN
     Dosage: 50 MG, AS NEEDED (2-3 TIMES EVERY DAY)
     Route: 048

REACTIONS (3)
  - Gait inability [Unknown]
  - Back disorder [Unknown]
  - Pain in extremity [Unknown]
